FAERS Safety Report 4769951-2 (Version None)
Quarter: 2005Q3

REPORT INFORMATION
  Report Type: 
  Country: None (occurrence: None)
  Receive Date: 20050914
  Receipt Date: 20050907
  Transmission Date: 20060218
  Serious: Yes (Other)
  Sender: FDA-Public Use
  Company Number: TCI2005A03862

PATIENT
  Age: 77 Year
  Sex: Male

DRUGS (5)
  1. ACTOS [Suspect]
     Indication: DIABETES MELLITUS NON-INSULIN-DEPENDENT
     Dosage: 15 MG (15 MG, 1 D), PER ORAL
     Route: 048
     Dates: start: 20050707, end: 20050905
  2. BASEN TABLETS 0.2 (VOGLIBOSE) [Concomitant]
  3. DIOVAN [Concomitant]
  4. AMARYL (GLIMEPIRIDE0 [Concomitant]
  5. NORVASC [Concomitant]

REACTIONS (2)
  - ATRIOVENTRICULAR BLOCK [None]
  - BRADYCARDIA [None]
